FAERS Safety Report 9842848 (Version 1)
Quarter: 2013Q4

REPORT INFORMATION
  Report Type: Spontaneous
  Country: US (occurrence: None)
  Receive Date: 20131211
  Receipt Date: 20131211
  Transmission Date: 20140711
  Serious: Yes (Other)
  Sender: FDA-Public Use
  Company Number: ALL1-2012-00192

PATIENT
  Age: 16 Year
  Sex: Male

DRUGS (2)
  1. ELAPRASE (IDURSULFASE) CONCENTRATE FOR SOLUTION FOR INFUSION [Suspect]
     Indication: MUCOPOLYSACCHARIDOSIS II
     Dosage: 12 MG, 1X/WEEK (2 VIALS WEEKLY), IV DRIP
     Dates: start: 20061006
  2. SEIZURE MEDICATION [Suspect]

REACTIONS (1)
  - Convulsion [None]
